FAERS Safety Report 16961997 (Version 1)
Quarter: 2019Q4

REPORT INFORMATION
  Report Type: Spontaneous
  Country: US (occurrence: US)
  Receive Date: 20191025
  Receipt Date: 20191025
  Transmission Date: 20200122
  Serious: No
  Sender: FDA-Public Use
  Company Number: US-BAYER-2019-193031

PATIENT
  Age: 76 Year
  Sex: Female

DRUGS (4)
  1. QUINIDINE [Concomitant]
     Active Substance: QUINIDINE
     Indication: HYPERTENSION
  2. CALCIUM [Concomitant]
     Active Substance: CALCIUM
  3. MIRALAX [Suspect]
     Active Substance: POLYETHYLENE GLYCOL 3350
     Indication: GASTROINTESTINAL DISORDER
     Dosage: UNK G
     Route: 048
     Dates: start: 2019
  4. MIRALAX [Suspect]
     Active Substance: POLYETHYLENE GLYCOL 3350
     Indication: GASTROINTESTINAL DISORDER
     Dosage: 17 G
     Route: 048
     Dates: start: 2019

REACTIONS (1)
  - Incorrect dose administered [Unknown]

NARRATIVE: CASE EVENT DATE: 2019
